FAERS Safety Report 6973794-9 (Version None)
Quarter: 2010Q3

REPORT INFORMATION
  Report Type: 
  Country: None (occurrence: None)
  Receive Date: 20100909
  Receipt Date: 20100902
  Transmission Date: 20110219
  Serious: Yes (Other)
  Sender: FDA-Public Use
  Company Number: A0879258A

PATIENT
  Age: 63 Year
  Sex: Female

DRUGS (9)
  1. ADVAIR DISKUS 100/50 [Suspect]
     Indication: ASTHMA
     Route: 055
     Dates: start: 20100812
  2. LEVOTHYROXINE SODIUM [Concomitant]
  3. BENICAR [Concomitant]
  4. FLECAINIDE ACETATE [Concomitant]
  5. DILTIAZEM [Concomitant]
  6. ASPIRIN [Concomitant]
  7. VENTOLIN [Concomitant]
  8. PREMARIN [Concomitant]
  9. VITAMINS [Concomitant]

REACTIONS (8)
  - COUGH [None]
  - DYSPHONIA [None]
  - HEADACHE [None]
  - INFLUENZA LIKE ILLNESS [None]
  - NASAL CONGESTION [None]
  - PNEUMONIA [None]
  - RHINORRHOEA [None]
  - THROAT TIGHTNESS [None]
